FAERS Safety Report 16540703 (Version 1)
Quarter: 2019Q3

REPORT INFORMATION
  Report Type: Spontaneous
  Country: US (occurrence: US)
  Receive Date: 20190707
  Receipt Date: 20190707
  Transmission Date: 20191004
  Serious: No
  Sender: FDA-Public Use
  Company Number: None

PATIENT
  Age: 36 Year
  Sex: Female
  Weight: 74.25 kg

DRUGS (2)
  1. EQUATE SUPPORT MOISTURE LUBRICANT EYE [Suspect]
     Active Substance: PROPYLENE GLYCOL
     Indication: CORNEAL ABRASION
     Dosage: ?          QUANTITY:10 DROP(S);?
     Route: 047
     Dates: start: 20190502, end: 20190519
  2. EQUATE SUPPORT MOISTURE LUBRICANT EYE [Suspect]
     Active Substance: PROPYLENE GLYCOL
     Indication: DRY EYE
     Dosage: ?          QUANTITY:10 DROP(S);?
     Route: 047
     Dates: start: 20190502, end: 20190519

REACTIONS (2)
  - Eye pruritus [None]
  - Eyelid infection [None]

NARRATIVE: CASE EVENT DATE: 20190510
